FAERS Safety Report 24447086 (Version 5)
Quarter: 2025Q1

REPORT INFORMATION
  Report Type: Spontaneous
  Country: CN (occurrence: CN)
  Receive Date: 20241016
  Receipt Date: 20250103
  Transmission Date: 20250408
  Serious: Yes (Hospitalization, Other)
  Sender: PFIZER
  Company Number: CN-PFIZER INC-PV202400133590

PATIENT
  Age: 23 Year
  Sex: Male

DRUGS (15)
  1. BENEFIX [Suspect]
     Active Substance: COAGULATION FACTOR IX RECOMBINANT HUMAN\ISOPROPYL ALCOHOL
     Dosage: 1500 IU, 2X/DAY
     Route: 042
     Dates: start: 20230724
  2. BENEFIX [Suspect]
     Active Substance: COAGULATION FACTOR IX RECOMBINANT HUMAN\ISOPROPYL ALCOHOL
     Dosage: 1500 IU, 2X/DAY
     Route: 042
     Dates: start: 20230919
  3. BENEFIX [Suspect]
     Active Substance: COAGULATION FACTOR IX RECOMBINANT HUMAN\ISOPROPYL ALCOHOL
     Dosage: 2000 IU, 1X/DAY
     Route: 042
     Dates: start: 20231207
  4. BENEFIX [Suspect]
     Active Substance: COAGULATION FACTOR IX RECOMBINANT HUMAN\ISOPROPYL ALCOHOL
     Dosage: 2000 IU, 1X/DAY
     Route: 042
     Dates: start: 20231221
  5. BENEFIX [Suspect]
     Active Substance: COAGULATION FACTOR IX RECOMBINANT HUMAN\ISOPROPYL ALCOHOL
     Dosage: 2000 IU, 1X/DAY
     Route: 042
     Dates: start: 20240124
  6. BENEFIX [Suspect]
     Active Substance: COAGULATION FACTOR IX RECOMBINANT HUMAN\ISOPROPYL ALCOHOL
     Dosage: 2000 IU, 1X/DAY
     Route: 042
     Dates: start: 20240307
  7. BENEFIX [Suspect]
     Active Substance: COAGULATION FACTOR IX RECOMBINANT HUMAN\ISOPROPYL ALCOHOL
     Dosage: 2000 IU, 1X/DAY
     Route: 042
     Dates: start: 20240430
  8. BENEFIX [Suspect]
     Active Substance: COAGULATION FACTOR IX RECOMBINANT HUMAN\ISOPROPYL ALCOHOL
     Dosage: 2000 IU, 1X/DAY
     Route: 042
     Dates: start: 20240619
  9. BENEFIX [Suspect]
     Active Substance: COAGULATION FACTOR IX RECOMBINANT HUMAN\ISOPROPYL ALCOHOL
     Dosage: 2000 IU, 1X/DAY
     Route: 042
     Dates: start: 20240704
  10. BENEFIX [Suspect]
     Active Substance: COAGULATION FACTOR IX RECOMBINANT HUMAN\ISOPROPYL ALCOHOL
     Dosage: 2000 IU, 1X/DAY
     Route: 042
     Dates: start: 20240711
  11. BENEFIX [Suspect]
     Active Substance: COAGULATION FACTOR IX RECOMBINANT HUMAN\ISOPROPYL ALCOHOL
     Dosage: 2000 IU, 1X/DAY
     Route: 042
     Dates: start: 20240918
  12. BENEFIX [Suspect]
     Active Substance: COAGULATION FACTOR IX RECOMBINANT HUMAN\ISOPROPYL ALCOHOL
     Dosage: 2000 IU, 1X/DAY
     Route: 042
     Dates: start: 20241002
  13. BENEFIX [Suspect]
     Active Substance: COAGULATION FACTOR IX RECOMBINANT HUMAN\ISOPROPYL ALCOHOL
     Dosage: 2000 IU, 1X/DAY
     Route: 042
     Dates: start: 20241014
  14. BENEFIX [Suspect]
     Active Substance: COAGULATION FACTOR IX RECOMBINANT HUMAN\ISOPROPYL ALCOHOL
     Dosage: 2000 IU, 1X/DAY
     Route: 042
     Dates: start: 20241122
  15. BENEFIX [Suspect]
     Active Substance: COAGULATION FACTOR IX RECOMBINANT HUMAN\ISOPROPYL ALCOHOL
     Dosage: 2000 IU, 1X/DAY
     Route: 040
     Dates: start: 20241213

REACTIONS (6)
  - Knee arthroplasty [Unknown]
  - Epistaxis [Unknown]
  - Arthropathy [Unknown]
  - Joint swelling [Unknown]
  - Arthralgia [Unknown]
  - Mobility decreased [Unknown]

NARRATIVE: CASE EVENT DATE: 20240101
